FAERS Safety Report 8852068 (Version 2)
Quarter: 2013Q2

REPORT INFORMATION
  Report Type: Spontaneous
  Country: US (occurrence: US)
  Receive Date: 20121022
  Receipt Date: 20130509
  Transmission Date: 20140414
  Serious: Yes (Life-Threatening, Hospitalization, Disabling)
  Sender: FDA-Public Use
  Company Number: US-BAYER-2012-107536

PATIENT
  Age: 35 Year
  Sex: Female

DRUGS (6)
  1. YAZ [Suspect]
     Indication: CONTRACEPTION
  2. BEYAZ [Suspect]
  3. OCELLA [Suspect]
  4. YASMIN [Suspect]
  5. GIANVI [Suspect]
  6. MORPHINE [Concomitant]

REACTIONS (8)
  - Deep vein thrombosis [None]
  - Emotional distress [None]
  - Injury [None]
  - Pain [None]
  - General physical health deterioration [None]
  - Anhedonia [None]
  - Anxiety [None]
  - Pain [None]
